FAERS Safety Report 7511126-8 (Version None)
Quarter: 2011Q2

REPORT INFORMATION
  Report Type: 
  Country: None (occurrence: None)
  Receive Date: 20110531
  Receipt Date: 20110517
  Transmission Date: 20111010
  Serious: Yes (Other)
  Sender: FDA-Public Use
  Company Number: US-JNJFOC-20110508310

PATIENT
  Sex: Female
  Weight: 96.16 kg

DRUGS (14)
  1. IMMUNE GLOBULIN NOS [Concomitant]
     Indication: MONOCLONAL GAMMOPATHY
     Route: 042
     Dates: start: 20101001
  2. IMMUNE GLOBULIN INTRAVENOUS (HUMAN) [Concomitant]
     Indication: MONOCLONAL GAMMOPATHY
     Route: 058
     Dates: start: 20060101, end: 20080101
  3. PHENERGAN HCL [Concomitant]
     Indication: NAUSEA
     Route: 065
  4. UNKNOWN MEDICATION [Concomitant]
     Indication: HORMONE THERAPY
     Dosage: 4 DROPS TOPICALLY
     Route: 061
  5. ZITHROMAX [Concomitant]
     Indication: IMMUNE SYSTEM DISORDER
     Dosage: EVERY MONDAY, WEDNESDAY, FRIDAY
     Route: 048
     Dates: start: 20090101
  6. FENTANYL-100 [Suspect]
     Indication: FIBROMYALGIA
     Route: 062
     Dates: start: 20070101, end: 20100101
  7. FENTANYL-100 [Suspect]
     Indication: PRODUCT USED FOR UNKNOWN INDICATION
     Route: 062
  8. CIPRO [Concomitant]
     Indication: IMMUNE SYSTEM DISORDER
     Dosage: ONCE DAILY FOR 2 WEEKS ROTATING WITH OTHER ANTIBIOTICS
     Route: 048
     Dates: start: 20060101
  9. DURAGESIC-100 [Suspect]
     Indication: FIBROMYALGIA
     Route: 062
     Dates: start: 20110101, end: 20110101
  10. DURAGESIC-100 [Suspect]
     Dosage: 2 25 MCG
     Route: 062
     Dates: start: 20000101, end: 20070101
  11. ADVAIR DISKUS 100/50 [Concomitant]
     Indication: CHRONIC OBSTRUCTIVE PULMONARY DISEASE
     Dosage: 50-100 MG
     Route: 048
     Dates: start: 19990101
  12. SINGULAIR [Concomitant]
     Indication: CHRONIC OBSTRUCTIVE PULMONARY DISEASE
     Route: 048
     Dates: start: 19990101
  13. BIAXIN [Concomitant]
     Indication: IMMUNE SYSTEM DISORDER
     Dosage: ONCE DAILY FOR 2 WEEKS ROTATING WITH OTHER ANTIBIOTICS
     Route: 048
     Dates: start: 20060101
  14. AUGMENTIN [Concomitant]
     Indication: IMMUNE SYSTEM DISORDER
     Dosage: ONCE DAILY FOR 2 WEEKS ROTATING WITH OTHER ANTIBIOTICS
     Route: 048
     Dates: start: 20060101

REACTIONS (5)
  - MONOCLONAL GAMMOPATHY [None]
  - DRUG INEFFECTIVE [None]
  - ABNORMAL LOSS OF WEIGHT [None]
  - FEELING ABNORMAL [None]
  - APPLICATION SITE VESICLES [None]
